FAERS Safety Report 24148900 (Version 1)
Quarter: 2024Q3

REPORT INFORMATION
  Report Type: Spontaneous
  Country: CA (occurrence: CA)
  Receive Date: 20240729
  Receipt Date: 20240729
  Transmission Date: 20241017
  Serious: Yes (Other)
  Sender: PFIZER
  Company Number: CA-PFIZER INC-202400225196

PATIENT
  Age: 59 Year
  Sex: Female

DRUGS (15)
  1. METHOTREXATE SODIUM [Suspect]
     Active Substance: METHOTREXATE SODIUM
     Dosage: 20 MG, WEEKLY
     Dates: start: 2008, end: 202404
  2. CALCIUM [Concomitant]
     Active Substance: CALCIUM
     Dosage: UNK
  3. ENBREL [Concomitant]
     Active Substance: BENZYL ALCOHOL\ETANERCEPT
     Dosage: UNK
     Dates: start: 200909, end: 200910
  4. PREDNISONE [Concomitant]
     Active Substance: PREDNISONE
     Dosage: 5 MG, 1X/DAY
     Dates: start: 202011
  5. PROLIA [Concomitant]
     Active Substance: DENOSUMAB
     Dosage: UNK
  6. RITUXAN [Concomitant]
     Active Substance: RITUXIMAB
     Dosage: UNK
     Dates: start: 2013, end: 2019
  7. RITUXIMAB [Concomitant]
     Active Substance: RITUXIMAB
     Indication: Rheumatoid arthritis
     Dosage: 1000 MG DAY 1 AND 15
     Route: 042
     Dates: start: 20211015, end: 20211028
  8. RITUXIMAB [Concomitant]
     Active Substance: RITUXIMAB
     Dosage: 1000 MG DAY 1 AND 15
     Route: 042
     Dates: start: 20220720, end: 20220804
  9. RITUXIMAB [Concomitant]
     Active Substance: RITUXIMAB
     Dosage: 1000 MG DAY 1 AND 15
     Route: 042
     Dates: start: 20230309, end: 20230324
  10. HERBALS\TURMERIC [Concomitant]
     Active Substance: HERBALS\TURMERIC
     Dosage: UNK
  11. TYLENOL [Concomitant]
     Active Substance: ACETAMINOPHEN
     Dosage: UNK
  12. VITAMIN B12 [Concomitant]
     Active Substance: CYANOCOBALAMIN
     Dosage: UNK
  13. VITAMIN B [Concomitant]
     Active Substance: VITAMIN B
     Dosage: UNK
  14. ASCORBIC ACID\ZINC [Concomitant]
     Active Substance: ASCORBIC ACID\ZINC
     Dosage: UNK
  15. VITAMIN D3 K2 [Concomitant]
     Dosage: UNK

REACTIONS (6)
  - Pneumonitis [Unknown]
  - Elbow operation [Unknown]
  - Hip arthroplasty [Unknown]
  - Arthrodesis [Unknown]
  - Joint swelling [Unknown]
  - Tender joint count increased [Unknown]

NARRATIVE: CASE EVENT DATE: 20080101
